FAERS Safety Report 8522110-X (Version None)
Quarter: 2012Q3

REPORT INFORMATION
  Report Type: 
  Country: None (occurrence: None)
  Receive Date: 20120719
  Receipt Date: 20120713
  Transmission Date: 20120928
  Serious: Yes (Other)
  Sender: FDA-Public Use
  Company Number: JP-B.I. PHARMACEUTICALS,INC./RIDGEFIELD-2012-BP-13873NB

PATIENT
  Sex: Male
  Weight: 73.4 kg

DRUGS (7)
  1. SUNRYTHM [Suspect]
     Indication: ARRHYTHMIA
     Dosage: 100 MG
     Route: 048
     Dates: start: 20120428, end: 20120623
  2. HYDANTOL F [Concomitant]
     Indication: EPILEPSY
     Route: 048
  3. PRADAXA [Suspect]
     Indication: ATRIAL FIBRILLATION
     Dosage: 220 MG
     Route: 048
     Dates: start: 20120428
  4. PHENYTOIN [Concomitant]
     Indication: EPILEPSY
     Dosage: 25 MG
     Route: 048
  5. EPINASTINE HYDROCHLORIDE [Concomitant]
     Route: 065
  6. ALISRYTHM [Suspect]
     Indication: ARRHYTHMIA
     Dosage: 100 MG
     Route: 048
     Dates: start: 20120602
  7. PROLMON [Concomitant]
     Indication: HEPATIC FUNCTION ABNORMAL
     Route: 048

REACTIONS (2)
  - GASTRITIS [None]
  - EPILEPSY [None]
